FAERS Safety Report 4741517-X (Version None)
Quarter: 2005Q3

REPORT INFORMATION
  Report Type: 
  Country: None (occurrence: None)
  Receive Date: 20050808
  Receipt Date: 20050525
  Transmission Date: 20060218
  Serious: Yes (Death)
  Sender: FDA-Public Use
  Company Number: 2005FR-00205

PATIENT
  Age: 12 Year
  Sex: Female

DRUGS (2)
  1. PARACETAMOL [Suspect]
     Dosage: 7G
     Route: 054
  2. ENFLURANE [Suspect]

REACTIONS (3)
  - HEPATIC NECROSIS [None]
  - OVERDOSE [None]
  - SUDDEN DEATH [None]
